FAERS Safety Report 5176280-4 (Version None)
Quarter: 2006Q4

REPORT INFORMATION
  Report Type: 
  Country: None (occurrence: None)
  Receive Date: 20061215
  Receipt Date: 20060619
  Transmission Date: 20070319
  Serious: No
  Sender: FDA-Public Use
  Company Number: US-AMGEN-KDL183620

PATIENT
  Sex: Female

DRUGS (2)
  1. ENBREL [Suspect]
     Indication: PSORIASIS
     Route: 058
     Dates: start: 20060501, end: 20060531
  2. METHOTREXATE [Concomitant]
     Route: 048
     Dates: start: 20060517

REACTIONS (2)
  - CONDITION AGGRAVATED [None]
  - PSORIASIS [None]
